FAERS Safety Report 5777913-1 (Version None)
Quarter: 2008Q2

REPORT INFORMATION
  Report Type: 
  Country: None (occurrence: None)
  Receive Date: 20080618
  Receipt Date: 20080613
  Transmission Date: 20081010
  Serious: Yes (Other)
  Sender: FDA-Public Use
  Company Number: US-MERCK-0805USA01385

PATIENT
  Age: 64 Year
  Sex: Female
  Weight: 88 kg

DRUGS (4)
  1. SINGULAIR [Suspect]
     Indication: HYPERSENSITIVITY
     Route: 048
     Dates: start: 20070326, end: 20080101
  2. VYTORIN [Concomitant]
     Route: 048
     Dates: start: 20060101
  3. CHOLECALCIFEROL [Concomitant]
     Route: 065
  4. MICARDIS [Concomitant]
     Route: 048
     Dates: start: 20060101

REACTIONS (2)
  - DEPRESSION [None]
  - SUICIDAL IDEATION [None]
